FAERS Safety Report 5400389-0 (Version None)
Quarter: 2007Q3

REPORT INFORMATION
  Report Type: 
  Country: None (occurrence: None)
  Receive Date: 20070730
  Receipt Date: 20070724
  Transmission Date: 20080115
  Serious: Yes (Hospitalization)
  Sender: FDA-Public Use
  Company Number: B0477563A

PATIENT
  Age: 43 Year
  Sex: Female
  Weight: 47 kg

DRUGS (10)
  1. PAXIL [Suspect]
     Indication: DEPRESSION
     Route: 048
     Dates: start: 20070324
  2. MEILAX [Concomitant]
     Indication: NEUROSIS
     Route: 048
     Dates: start: 20070324, end: 20070420
  3. HALCION [Concomitant]
     Indication: INSOMNIA
     Dosage: .25MG PER DAY
     Route: 048
     Dates: start: 20070324, end: 20070518
  4. MYSLEE [Concomitant]
     Indication: INSOMNIA
     Dosage: 5MG PER DAY
     Route: 048
     Dates: start: 20070609
  5. GRANDAXIN [Concomitant]
     Indication: NEUROSIS
     Dosage: 100MG PER DAY
     Route: 048
     Dates: start: 20070609
  6. GASMOTIN [Concomitant]
     Indication: ANOREXIA
     Dosage: 10MG PER DAY
     Route: 048
     Dates: start: 20070414
  7. MUCOSTA [Concomitant]
     Indication: ANOREXIA
     Dosage: 200MG PER DAY
     Route: 048
     Dates: start: 20070414
  8. ORAL BALANCE [Concomitant]
     Indication: NEUROSIS
     Dosage: 4MG PER DAY
     Route: 048
     Dates: start: 20070421, end: 20070518
  9. NITRAZEPAM [Concomitant]
     Indication: INSOMNIA
     Dosage: 5MG PER DAY
     Route: 048
     Dates: start: 20070331, end: 20070413
  10. LASIX [Concomitant]

REACTIONS (17)
  - BLOOD AMYLASE INCREASED [None]
  - C-REACTIVE PROTEIN INCREASED [None]
  - DEPRESSED LEVEL OF CONSCIOUSNESS [None]
  - FALL [None]
  - FEELING GUILTY [None]
  - ILL-DEFINED DISORDER [None]
  - INJURY [None]
  - MALAISE [None]
  - OVERDOSE [None]
  - PERSECUTORY DELUSION [None]
  - SELF MUTILATION [None]
  - SIALOADENITIS [None]
  - SOMNOLENCE [None]
  - SUICIDE ATTEMPT [None]
  - THIRST [None]
  - URINARY RETENTION [None]
  - WHITE BLOOD CELL COUNT INCREASED [None]
